FAERS Safety Report 21891326 (Version 3)
Quarter: 2023Q1

REPORT INFORMATION
  Report Type: Spontaneous
  Country: JP (occurrence: JP)
  Receive Date: 20230120
  Receipt Date: 20230310
  Transmission Date: 20230418
  Serious: Yes (Other)
  Sender: FDA-Public Use
  Company Number: JP-OTSUKA-2023_001156

PATIENT
  Age: 8 Decade
  Sex: Female

DRUGS (8)
  1. ICLUSIG [Suspect]
     Active Substance: PONATINIB
     Indication: B precursor type acute leukaemia
     Dosage: 15 MILLIGRAM, QD
     Route: 065
     Dates: start: 20221102
  2. DEXAMETHASONE [Suspect]
     Active Substance: DEXAMETHASONE
     Indication: Cytokine release syndrome
     Dosage: 40 MILLIGRAM
     Route: 042
  3. DEXAMETHASONE [Suspect]
     Active Substance: DEXAMETHASONE
     Indication: Pyrexia
     Dosage: UNK
     Route: 042
  4. BLINCYTO [Suspect]
     Active Substance: BLINATUMOMAB
     Indication: Acute lymphocytic leukaemia recurrent
     Dosage: 5 MICROGRAM/SQ. METER
     Route: 042
     Dates: start: 20221005, end: 20221007
  5. BLINCYTO [Suspect]
     Active Substance: BLINATUMOMAB
     Indication: Philadelphia chromosome positive
     Dosage: 5 MICROGRAM, QD
     Route: 042
     Dates: start: 20221008, end: 20221012
  6. BLINCYTO [Suspect]
     Active Substance: BLINATUMOMAB
     Dosage: 15 MICROGRAM/SQ. METER
     Route: 042
     Dates: start: 20221013
  7. NITRIC ACID [Concomitant]
     Active Substance: NITRIC ACID
     Indication: Product used for unknown indication
     Dosage: UNK
     Route: 065
  8. SILVER NITRATE [Concomitant]
     Active Substance: SILVER NITRATE
     Indication: Product used for unknown indication
     Dosage: UNK
     Route: 065

REACTIONS (7)
  - Subdural hygroma [Unknown]
  - Cytokine release syndrome [Recovered/Resolved]
  - Subdural abscess [Recovered/Resolved]
  - Anal fistula infection [Recovered/Resolved]
  - Subdural haemorrhage [Recovered/Resolved]
  - Cerebellar infarction [Unknown]
  - Tumour lysis syndrome [Unknown]
